FAERS Safety Report 6877192-8 (Version None)
Quarter: 2010Q3

REPORT INFORMATION
  Report Type: 
  Country: None (occurrence: None)
  Receive Date: 20100727
  Receipt Date: 20100721
  Transmission Date: 20110219
  Serious: Yes (Hospitalization, Other)
  Sender: FDA-Public Use
  Company Number: US-AMGEN-KDC423718

PATIENT
  Age: 17 Year
  Sex: Female
  Weight: 73 kg

DRUGS (3)
  1. ENBREL [Suspect]
     Indication: PRODUCT USED FOR UNKNOWN INDICATION
     Route: 058
  2. CELEXA [Concomitant]
     Route: 048
  3. NEXIUM [Concomitant]
     Route: 048

REACTIONS (2)
  - OTITIS MEDIA [None]
  - VOMITING [None]
